FAERS Safety Report 11404190 (Version 2)
Quarter: 2015Q3

REPORT INFORMATION
  Report Type: Spontaneous
  Country: US (occurrence: US)
  Receive Date: 20150821
  Receipt Date: 20150924
  Transmission Date: 20151125
  Serious: No
  Sender: FDA-Public Use
  Company Number: US-GLAXOSMITHKLINE-US2015GSK119906

PATIENT
  Sex: Male

DRUGS (1)
  1. VOTRIENT [Suspect]
     Active Substance: PAZOPANIB HYDROCHLORIDE
     Indication: BONE CANCER
     Dosage: 600 MG, QD
     Dates: start: 20150710

REACTIONS (6)
  - Drug dose omission [Unknown]
  - Dehydration [Unknown]
  - Vomiting [Unknown]
  - Neutrophil count abnormal [Unknown]
  - Fluid intake reduced [Unknown]
  - Liver function test abnormal [Unknown]
